FAERS Safety Report 21332498 (Version 1)
Quarter: 2022Q3

REPORT INFORMATION
  Report Type: Spontaneous
  Country: PL (occurrence: None)
  Receive Date: 20220914
  Receipt Date: 20220914
  Transmission Date: 20221027
  Serious: Yes (Hospitalization, Other)
  Sender: FDA-Public Use
  Company Number: 2022A313132

PATIENT
  Age: 41 Year
  Sex: Female

DRUGS (1)
  1. DURVALUMAB [Suspect]
     Active Substance: DURVALUMAB
     Indication: Non-small cell lung cancer
     Route: 042

REACTIONS (3)
  - Malignant neoplasm progression [Recovering/Resolving]
  - Pulmonary embolism [Recovering/Resolving]
  - Oxygen saturation decreased [Recovering/Resolving]
